FAERS Safety Report 7096411-9 (Version None)
Quarter: 2010Q4

REPORT INFORMATION
  Report Type: 
  Country: None (occurrence: None)
  Receive Date: 20101101
  Receipt Date: 20101021
  Transmission Date: 20110411
  Serious: Yes (Other)
  Sender: FDA-Public Use
  Company Number: 020787

PATIENT
  Sex: Female

DRUGS (1)
  1. KEPPRA [Suspect]

REACTIONS (3)
  - HYPOTHERMIA [None]
  - HYPOTHYROIDISM [None]
  - MITOCHONDRIAL CYTOPATHY [None]
